FAERS Safety Report 5619918-7 (Version None)
Quarter: 2008Q1

REPORT INFORMATION
  Report Type: 
  Country: None (occurrence: None)
  Receive Date: 20080208
  Receipt Date: 20070705
  Transmission Date: 20080703
  Serious: No
  Sender: FDA-Public Use
  Company Number: US-ABBOTT-07P-163-0373751-00

PATIENT
  Sex: Female
  Weight: 77.18 kg

DRUGS (3)
  1. VICODIN [Suspect]
     Indication: DENTAL DISCOMFORT
     Route: 048
     Dates: start: 20070622, end: 20070701
  2. IBUPROFEN [Concomitant]
     Indication: PAIN
     Route: 048
  3. METOPROLOL SUCCINATE [Concomitant]
     Indication: ATRIAL FIBRILLATION
     Route: 048
     Dates: start: 20060101

REACTIONS (1)
  - DRUG INEFFECTIVE [None]
